FAERS Safety Report 8988546 (Version 1)
Quarter: 2012Q4

REPORT INFORMATION
  Report Type: Spontaneous
  Country: ES (occurrence: None)
  Receive Date: 20121218
  Receipt Date: 20121218
  Transmission Date: 20130627
  Serious: Yes (Other)
  Sender: FDA-Public Use
  Company Number: FK201203887

PATIENT
  Age: 9 Year
  Sex: Female

DRUGS (3)
  1. CISPLATIN [Suspect]
     Indication: MEDULLOBLASTOMA
  2. VINCRISTINE [Suspect]
  3. LOMUSTINE (LOMUSTINE) [Concomitant]

REACTIONS (5)
  - Posterior reversible encephalopathy syndrome [None]
  - Insomnia [None]
  - Abdominal pain [None]
  - Complex partial seizures [None]
  - Hypertension [None]
